FAERS Safety Report 19847680 (Version 1)
Quarter: 2021Q3

REPORT INFORMATION
  Report Type: Report from Study
  Country: FR (occurrence: FR)
  Receive Date: 20210917
  Receipt Date: 20210917
  Transmission Date: 20211014
  Serious: Yes (Hospitalization, Other)
  Sender: FDA-Public Use
  Company Number: FR-SERVIER-S21010057

PATIENT

DRUGS (14)
  1. PEGASPARGASE [Suspect]
     Active Substance: PEGASPARGASE
     Indication: ACUTE LYMPHOCYTIC LEUKAEMIA
     Dosage: 4525 IU, OTHER, D7
     Route: 042
     Dates: start: 20210717, end: 20210717
  2. TN UNSPECIFIED [Concomitant]
     Indication: ACUTE LYMPHOCYTIC LEUKAEMIA
     Dosage: 7240 MG, D1 AND D2
     Route: 042
     Dates: start: 20210712, end: 20210713
  3. TN UNSPECIFIED [Concomitant]
     Indication: ACUTE LYMPHOCYTIC LEUKAEMIA
     Dosage: 14.5 MG, D3 AND D4
     Route: 042
     Dates: start: 20210714, end: 20210715
  4. TN UNSPECIFIED [Concomitant]
     Dosage: UNK
     Route: 048
  5. TN UNSPECIFIED [Concomitant]
     Indication: PRODUCT USED FOR UNKNOWN INDICATION
     Dosage: 5 MG
     Route: 048
  6. TN UNSPECIFIED [Concomitant]
     Indication: ACUTE LYMPHOCYTIC LEUKAEMIA
     Dosage: 14.5 MG, D3 AND D4
     Route: 042
     Dates: start: 20210714, end: 20210715
  7. TN UNSPECIFIED [Concomitant]
     Indication: PRODUCT USED FOR UNKNOWN INDICATION
     Dosage: 50 MG
     Route: 048
  8. COTRIMOXAZOLE [Concomitant]
     Active Substance: SULFAMETHOXAZOLE\TRIMETHOPRIM
     Indication: PRODUCT USED FOR UNKNOWN INDICATION
     Dosage: UNK
     Route: 048
     Dates: start: 20210712
  9. TN UNSPECIFIED [Concomitant]
     Indication: PRODUCT USED FOR UNKNOWN INDICATION
     Dosage: UNK
     Route: 048
  10. TN UNSPECIFIED [Concomitant]
     Dosage: 30 MG, D7
     Route: 037
     Dates: start: 20210716
  11. TN UNSPECIFIED [Concomitant]
     Indication: ACUTE LYMPHOCYTIC LEUKAEMIA
     Dosage: 15 MG, D5
     Route: 037
     Dates: start: 20210716
  12. TN UNSPECIFIED [Concomitant]
     Indication: ACUTE LYMPHOCYTIC LEUKAEMIA
     Dosage: 14.5 MG, D5
     Route: 037
     Dates: start: 20210716
  13. TN UNSPECIFIED [Concomitant]
     Indication: ACUTE LYMPHOCYTIC LEUKAEMIA
     Dosage: 270 MG, D3 TO D5
     Route: 042
     Dates: start: 20210714, end: 20210717
  14. TN UNSPECIFIED [Concomitant]
     Indication: ACUTE LYMPHOCYTIC LEUKAEMIA
     Dosage: UNK
     Route: 048

REACTIONS (2)
  - Febrile bone marrow aplasia [Recovered/Resolved]
  - Blood culture positive [Recovered/Resolved]

NARRATIVE: CASE EVENT DATE: 20210726
